FAERS Safety Report 20472032 (Version 2)
Quarter: 2022Q3

REPORT INFORMATION
  Report Type: Spontaneous
  Country: US (occurrence: US)
  Receive Date: 20220214
  Receipt Date: 20220819
  Transmission Date: 20221027
  Serious: Yes (Hospitalization, Other)
  Sender: FDA-Public Use
  Company Number: US-GW PHARMA-202202USGW00555

PATIENT
  Age: 63 Year
  Sex: Male

DRUGS (6)
  1. EPIDIOLEX [Suspect]
     Active Substance: CANNABIDIOL
     Indication: Partial seizures
     Dosage: UNK (COURSE OF 1-2 MONTHS TO A DOSE OF 20 MG/KG)
     Route: 048
  2. TIAGABINE [Suspect]
     Active Substance: TIAGABINE
     Indication: Product used for unknown indication
     Dosage: UNK
     Route: 065
  3. PERAMPANEL [Concomitant]
     Active Substance: PERAMPANEL
     Indication: Product used for unknown indication
     Dosage: UNK
     Route: 065
  4. LEVETIRACETAM [Concomitant]
     Active Substance: LEVETIRACETAM
     Indication: Product used for unknown indication
     Dosage: UNK
     Route: 065
  5. LACOSAMIDE [Concomitant]
     Active Substance: LACOSAMIDE
     Indication: Product used for unknown indication
     Dosage: UNK
     Route: 065
  6. CLONAZEPAM [Concomitant]
     Active Substance: CLONAZEPAM
     Indication: Product used for unknown indication
     Dosage: UNK
     Route: 065

REACTIONS (9)
  - Confusional state [Recovered/Resolved]
  - Status epilepticus [Recovered/Resolved]
  - Unresponsive to stimuli [Unknown]
  - Change in seizure presentation [Unknown]
  - Myoclonic epilepsy [Unknown]
  - Disorientation [Unknown]
  - Amnesia [Unknown]
  - Fatigue [Unknown]
  - Product use in unapproved indication [Unknown]
